FAERS Safety Report 8345305 (Version 11)
Quarter: 2013Q2

REPORT INFORMATION
  Report Type: Spontaneous
  Country: US (occurrence: US)
  Receive Date: 20120120
  Receipt Date: 20130509
  Transmission Date: 20140414
  Serious: Yes (Life-Threatening, Hospitalization, Congenital Anomaly, Other)
  Sender: FDA-Public Use
  Company Number: US-PFIZER INC-2011293436

PATIENT
  Sex: Female

DRUGS (57)
  1. ZOLOFT [Suspect]
     Indication: POSTPARTUM DEPRESSION
     Dosage: 25 MG, 1X/DAY
     Route: 064
     Dates: start: 20060504
  2. ZOLOFT [Suspect]
     Indication: GENERALISED ANXIETY DISORDER
     Dosage: 50 MG, 1X/DAY
     Route: 064
     Dates: start: 20060613
  3. ZOLOFT [Suspect]
     Indication: INSOMNIA
     Dosage: 100 MG, 1X/DAY
     Route: 064
     Dates: start: 2006
  4. ZOLOFT [Suspect]
     Indication: RESTLESS LEGS SYNDROME
     Dosage: 80 MG, 1X/DAY
     Route: 064
     Dates: start: 20070201
  5. ZOLOFT [Suspect]
     Indication: DEPRESSION
  6. SERTRALINE HCL [Suspect]
     Indication: POSTPARTUM DEPRESSION
     Dosage: 25 MG, UNK
     Route: 064
     Dates: start: 20060821
  7. SERTRALINE HCL [Suspect]
     Indication: GENERALISED ANXIETY DISORDER
     Dosage: 50 MG, UNK
     Route: 064
     Dates: start: 20060922
  8. SERTRALINE HCL [Suspect]
     Indication: INSOMNIA
     Dosage: 100 MG, UNK
     Route: 064
     Dates: start: 20070529
  9. SERTRALINE HCL [Suspect]
     Indication: RESTLESS LEGS SYNDROME
  10. SERTRALINE HCL [Suspect]
     Indication: DEPRESSION
  11. SERAX [Concomitant]
     Indication: INSOMNIA
     Dosage: 10 TO 15 MG, AT BED TIME
     Route: 064
  12. COLACE [Concomitant]
     Dosage: 100 MG, 2X/DAY
     Route: 064
  13. PRENATAL VITAMINS [Concomitant]
     Dosage: 1 TABLET, DAILY
     Route: 064
  14. PROMETHAZINE [Concomitant]
     Indication: NAUSEA
     Dosage: 25 MG, UNK
     Route: 064
     Dates: start: 20070508
  15. PROMETHAZINE [Concomitant]
     Indication: VOMITING
  16. ZOFRAN [Concomitant]
     Dosage: 8 MG, UNK
     Route: 064
     Dates: start: 20070509
  17. TERBUTALINE [Concomitant]
     Dosage: 0.25 MG, 3X/DAY, 0.25 MG EVERY 30MINS THRICE DAILY
     Route: 064
     Dates: start: 20070722, end: 20070723
  18. BUTORPHANOL [Concomitant]
     Dosage: 2 MG, UNK
     Route: 064
     Dates: start: 20070723
  19. PERCOCET [Concomitant]
     Dosage: 100 MG, UNK
     Route: 064
     Dates: start: 20070820
  20. AMBIEN [Concomitant]
     Indication: INSOMNIA
     Dosage: 10 MG, UNK
     Route: 064
     Dates: start: 20070314
  21. AMBIEN [Concomitant]
     Indication: RESTLESS LEGS SYNDROME
     Dosage: 10 MG, UNK
     Route: 064
     Dates: start: 20070910
  22. IRON [Concomitant]
     Dosage: UNK
     Route: 064
  23. STADOL [Concomitant]
     Dosage: UNK
     Route: 064
     Dates: start: 20070313
  24. VISTARIL [Concomitant]
     Dosage: UNK
     Route: 064
     Dates: start: 20070313
  25. AMBIEN CR [Concomitant]
     Indication: INSOMNIA
     Dosage: 5 MG, ONE TABLET AT BEDTIME
     Route: 064
     Dates: start: 20020917
  26. AMBIEN CR [Concomitant]
     Indication: RESTLESS LEGS SYNDROME
     Dosage: 12.5 MG, UNK
     Route: 064
     Dates: start: 20070314
  27. AMBIEN CR [Concomitant]
     Dosage: ONE TABLET AT BEDTIME AS NEEDED
     Route: 064
     Dates: start: 20070618
  28. TYLENOL [Concomitant]
     Indication: PYREXIA
     Dosage: UNK
     Route: 064
     Dates: start: 20070314
  29. MOTRIN [Concomitant]
     Dosage: UNK
     Route: 064
  30. HYDROCODONE [Concomitant]
     Route: 064
  31. OXYCODONE [Concomitant]
     Indication: SCIATICA
     Dosage: (5/325)MG 1-2 TEA SPOON ORALLY FOR EVERY 4-6 HOURS AS NEEDED
     Route: 064
     Dates: start: 20070803
  32. OXYCODONE [Concomitant]
     Indication: BACK PAIN
  33. AMPICILLIN [Concomitant]
     Dosage: UNK
     Route: 064
  34. PROPOXYPHENE [Concomitant]
     Dosage: UNK
     Route: 064
  35. REGLAN [Concomitant]
     Dosage: UNK
     Route: 064
  36. MAGNESIUM SULFATE [Concomitant]
     Dosage: UNK
     Route: 064
  37. PROGESTERONE [Concomitant]
     Dosage: UNK
     Route: 064
  38. IMODIUM A-D [Concomitant]
     Dosage: UNK
     Route: 064
  39. XANAX [Concomitant]
     Dosage: UNK
     Route: 064
  40. NIFEDIPINE [Concomitant]
     Indication: UTERINE CONTRACTIONS DURING PREGNANCY
     Dosage: 10 MG, EVERY HOUR
     Route: 064
     Dates: start: 20070716
  41. FLUCONAZOLE [Concomitant]
     Dosage: UNK
     Route: 064
  42. BIAXIN [Concomitant]
     Dosage: UNK
     Route: 064
  43. AMOX-CLAV [Concomitant]
     Dosage: UNK
     Route: 064
  44. PHENERGAN [Concomitant]
     Dosage: UNK
     Route: 064
  45. DIHYDRO CP [Concomitant]
     Dosage: UNK
  46. CPM 8/PSE 90/MSC 2.5 MG [Concomitant]
     Dosage: UNK
     Route: 064
  47. CELEXA [Concomitant]
     Indication: DEPRESSION
     Dosage: 20 MG, 1X/DAY
     Route: 064
     Dates: start: 20020917
  48. TYLENOL COLD [Concomitant]
     Indication: NASOPHARYNGITIS
     Dosage: UNK
     Route: 064
  49. BENADRYL [Concomitant]
     Indication: HYPERSENSITIVITY
     Dosage: UNK
     Route: 064
  50. PROPOXYPHENE-N 100 [Concomitant]
     Indication: SCIATICA
     Dosage: ONE TABLET FOR EVERY 4-6 HOURS AS NEEDED
     Route: 064
     Dates: start: 20070618
  51. PROPOXYPHENE-N 100 [Concomitant]
     Indication: BACK PAIN
  52. METOCLOPRAMIDE [Concomitant]
     Indication: DYSPEPSIA
     Dosage: 10 MG, 2X/DAY
     Route: 064
     Dates: start: 20070620
  53. METOCLOPRAMIDE [Concomitant]
     Indication: GASTROOESOPHAGEAL REFLUX DISEASE
  54. ZOLPIDEM [Concomitant]
     Indication: INSOMNIA
     Dosage: 10 MG, 1X/DAY (AT BEDTIME)
     Route: 064
     Dates: start: 20070806
  55. TERBUTALINE [Concomitant]
     Indication: UTERINE CONTRACTIONS DURING PREGNANCY
     Dosage: 5 MG, 4X/DAY
     Route: 064
     Dates: start: 20070911
  56. PROMETHAZINE [Concomitant]
     Indication: NAUSEA
     Dosage: 25 MG, TABLET FOR EVERY 4-6 HOURS
     Route: 064
     Dates: start: 20030211
  57. PROMETHAZINE [Concomitant]
     Indication: VOMITING

REACTIONS (24)
  - Maternal exposure timing unspecified [Unknown]
  - Congenital anomaly [Unknown]
  - Pulmonary artery atresia [Unknown]
  - Heart disease congenital [Unknown]
  - Pulmonary artery stenosis congenital [Unknown]
  - Tricuspid valve disease [Unknown]
  - Patent ductus arteriosus [Unknown]
  - Tricuspid valve incompetence [Unknown]
  - Congenital coronary artery malformation [Unknown]
  - Double outlet right ventricle [Unknown]
  - Ventricular septal defect [Unknown]
  - Congenital hepatobiliary anomaly [Unknown]
  - Hypoplastic right heart syndrome [Unknown]
  - Atrial septal defect [Unknown]
  - Cardiomegaly [Unknown]
  - Premature baby [Unknown]
  - Failure to thrive [Unknown]
  - Gastrooesophageal reflux disease [Unknown]
  - Stridor [Unknown]
  - Aspiration [Unknown]
  - Epiglottic oedema [Unknown]
  - Feeding disorder [Unknown]
  - Dysphagia [Unknown]
  - Speech disorder [Unknown]
